FAERS Safety Report 13609531 (Version 1)
Quarter: 2017Q2

REPORT INFORMATION
  Report Type: Spontaneous
  Country: TW (occurrence: TW)
  Receive Date: 20170602
  Receipt Date: 20170602
  Transmission Date: 20170830
  Serious: Yes (Other)
  Sender: FDA-Public Use
  Company Number: TW-PFIZER INC-2017236807

PATIENT
  Sex: Male

DRUGS (1)
  1. VIAGRA [Suspect]
     Active Substance: SILDENAFIL CITRATE
     Indication: SPINAL CORD INJURY
     Dosage: 50 MG, 1X/DAY (QD)
     Route: 048

REACTIONS (2)
  - Product use in unapproved indication [Unknown]
  - Visual acuity reduced [Unknown]
